FAERS Safety Report 8096884-9 (Version None)
Quarter: 2012Q1

REPORT INFORMATION
  Report Type: 
  Country: None (occurrence: None)
  Receive Date: 20120129
  Receipt Date: 20111202
  Transmission Date: 20120608
  Serious: No
  Sender: FDA-Public Use
  Company Number: US-ABBOTT-11P-163-0880678-00

PATIENT
  Age: 67 Year
  Sex: Male

DRUGS (7)
  1. HUMIRA [Suspect]
  2. LOPRESSOR [Concomitant]
     Indication: CORONARY ARTERIAL STENT INSERTION
  3. ASPIRIN [Concomitant]
     Indication: CARDIAC DISORDER
  4. HUMIRA [Suspect]
     Indication: RHEUMATOID ARTHRITIS
     Dates: start: 20110901
  5. PROZAC [Concomitant]
     Indication: ANXIETY
  6. ALLOPURINOL [Concomitant]
     Indication: NEPHROLITHIASIS
     Dosage: DAILY
  7. LIPITOR [Concomitant]
     Indication: BLOOD CHOLESTEROL

REACTIONS (8)
  - COUGH [None]
  - INCORRECT DOSE ADMINISTERED [None]
  - WRONG TECHNIQUE IN DRUG USAGE PROCESS [None]
  - EAR INFECTION [None]
  - PAIN IN JAW [None]
  - RHINORRHOEA [None]
  - EAR PAIN [None]
  - INJECTION SITE HAEMORRHAGE [None]
